FAERS Safety Report 17588224 (Version 2)
Quarter: 2020Q2

REPORT INFORMATION
  Report Type: Spontaneous
  Country: PK (occurrence: PK)
  Receive Date: 20200326
  Receipt Date: 20200420
  Transmission Date: 20200713
  Serious: Yes (Hospitalization, Other)
  Sender: FDA-Public Use
  Company Number: PK-NOVOPROD-720095

PATIENT
  Age: 52 Year
  Sex: Male
  Weight: 85 kg

DRUGS (2)
  1. NOVOMIX 50 FLEXPEN [Suspect]
     Active Substance: INSULIN ASPART
     Dosage: 80 IU, QD (40+40)
     Route: 058
  2. NOVOMIX 50 FLEXPEN [Suspect]
     Active Substance: INSULIN ASPART
     Indication: TYPE 2 DIABETES MELLITUS
     Dosage: 50 IU, QD(30+20)
     Route: 058
     Dates: start: 20180316

REACTIONS (3)
  - Blood glucose increased [Recovered/Resolved]
  - Gangrene [Recovering/Resolving]
  - Limb injury [Recovering/Resolving]

NARRATIVE: CASE EVENT DATE: 20200201
